FAERS Safety Report 6135722-8 (Version None)
Quarter: 2009Q1

REPORT INFORMATION
  Report Type: 
  Country: None (occurrence: None)
  Receive Date: 20090327
  Receipt Date: 20090316
  Transmission Date: 20090719
  Serious: Yes (Other)
  Sender: FDA-Public Use
  Company Number: FI-PFIZER INC-2009186102

PATIENT

DRUGS (3)
  1. LYRICA [Suspect]
     Indication: PAIN
     Dosage: FREQUENCY: EVERY DAY;
     Route: 048
     Dates: start: 20090201, end: 20090316
  2. PARAMAX [Concomitant]
     Route: 048
     Dates: start: 20080101
  3. SOMAC [Concomitant]
     Route: 048
     Dates: start: 20080901

REACTIONS (3)
  - DYSPNOEA [None]
  - HEADACHE [None]
  - PALPITATIONS [None]
